FAERS Safety Report 10012778 (Version 2)
Quarter: 2014Q2

REPORT INFORMATION
  Report Type: Spontaneous
  Country: JP (occurrence: JP)
  Receive Date: 20140314
  Receipt Date: 20140627
  Transmission Date: 20141212
  Serious: Yes (Death, Other)
  Sender: FDA-Public Use
  Company Number: CHPA2014JP003931

PATIENT
  Age: 64 Year
  Sex: Female

DRUGS (1)
  1. PURSENNID [Suspect]
     Dosage: 12 MG, QD
     Route: 048
     Dates: start: 200904, end: 200904

REACTIONS (5)
  - Death [Fatal]
  - Loss of consciousness [Unknown]
  - Fall [Unknown]
  - Spinal cord injury cervical [Unknown]
  - Abdominal pain [Unknown]
